FAERS Safety Report 12081552 (Version 2)
Quarter: 2016Q1

REPORT INFORMATION
  Report Type: Report from Study
  Country: US (occurrence: US)
  Receive Date: 20160216
  Receipt Date: 20160307
  Transmission Date: 20160526
  Serious: Yes (Life-Threatening, Hospitalization)
  Sender: FDA-Public Use
  Company Number: US-ACTELION-A-US2015-128524

PATIENT
  Age: 24 Year
  Sex: Female
  Weight: 53.52 kg

DRUGS (11)
  1. MAGNESIUM [Concomitant]
     Active Substance: MAGNESIUM
  2. METOPROLOL. [Concomitant]
     Active Substance: METOPROLOL
  3. PROGRAF [Concomitant]
     Active Substance: TACROLIMUS\TACROLIMUS ANHYDROUS
  4. PLAQUENIL [Concomitant]
     Active Substance: HYDROXYCHLOROQUINE SULFATE
  5. ASPIRIN. [Concomitant]
     Active Substance: ASPIRIN
  6. PRENATAL VITAMINS [Concomitant]
     Active Substance: VITAMINS
  7. VELETRI [Suspect]
     Active Substance: EPOPROSTENOL
     Dosage: 13 NG/KG, PER MIN
     Route: 042
  8. IMURAN [Concomitant]
     Active Substance: AZATHIOPRINE
  9. PREDNISOLONE. [Concomitant]
     Active Substance: PREDNISOLONE
  10. VELETRI [Suspect]
     Active Substance: EPOPROSTENOL
     Indication: PULMONARY ARTERIAL HYPERTENSION
     Dosage: 8 NG/KG, PER MIN
     Route: 042
     Dates: start: 20151009
  11. LASIX [Concomitant]
     Active Substance: FUROSEMIDE

REACTIONS (8)
  - Blood pressure increased [Recovered/Resolved]
  - Pain in jaw [Recovered/Resolved]
  - Pre-eclampsia [Recovered/Resolved]
  - Headache [Recovered/Resolved]
  - Pregnancy [Recovered/Resolved]
  - Live birth [Unknown]
  - Systemic lupus erythematosus [Recovered/Resolved]
  - Vomiting [Recovered/Resolved]

NARRATIVE: CASE EVENT DATE: 20151020
